FAERS Safety Report 10967041 (Version 3)
Quarter: 2015Q2

REPORT INFORMATION
  Report Type: Spontaneous
  Country: US (occurrence: US)
  Receive Date: 20150330
  Receipt Date: 20150528
  Transmission Date: 20150821
  Serious: Yes (Other)
  Sender: FDA-Public Use
  Company Number: US-PFIZER INC-2015109696

PATIENT
  Age: 71 Year
  Sex: Female
  Weight: 59 kg

DRUGS (13)
  1. GABAPENTIN. [Suspect]
     Active Substance: GABAPENTIN
     Indication: FIBROMYALGIA
     Dosage: 400 MG, 2X/DAY
     Dates: start: 20150326, end: 20150410
  2. PROPRANOLOL [Suspect]
     Active Substance: PROPRANOLOL\PROPRANOLOL HYDROCHLORIDE
     Indication: EXTRASYSTOLES
     Dosage: 10 MG, ONCE DAILY AS NEEDED
     Dates: start: 201407
  3. IBUPROFEN. [Suspect]
     Active Substance: IBUPROFEN
     Indication: PAIN
     Dosage: 200 MG, AS NEEDED
  4. TEMAZEPAM. [Suspect]
     Active Substance: TEMAZEPAM
     Indication: INSOMNIA
     Dosage: 15 MG, 1X/DAY (BED TIME)
     Dates: start: 2011, end: 20150423
  5. SAVELLA [Suspect]
     Active Substance: MILNACIPRAN HYDROCHLORIDE
     Dosage: 12.5 MG, UNK
     Dates: start: 20150331, end: 20150403
  6. LYRICA [Suspect]
     Active Substance: PREGABALIN
     Indication: HERPES ZOSTER
  7. PANTOPRAZOLE [Suspect]
     Active Substance: PANTOPRAZOLE SODIUM
     Indication: GASTROOESOPHAGEAL REFLUX DISEASE
     Dosage: 40 MG, 1X/DAY
     Dates: start: 201407, end: 20150422
  8. LYRICA [Suspect]
     Active Substance: PREGABALIN
     Indication: NEUROPATHY PERIPHERAL
  9. TEMAZEPAM. [Suspect]
     Active Substance: TEMAZEPAM
     Indication: SLEEP DISORDER
  10. LYRICA [Suspect]
     Active Substance: PREGABALIN
     Indication: FIBROMYALGIA
     Dosage: 100 MG, 2X/DAY
     Route: 048
     Dates: start: 2013
  11. LYRICA [Suspect]
     Active Substance: PREGABALIN
     Indication: NERVE INJURY
     Dosage: 100 MG, 1X/DAY
     Route: 048
     Dates: start: 20150307
  12. LINZESS [Suspect]
     Active Substance: LINACLOTIDE
     Indication: CONSTIPATION
     Dosage: 290 ?G, 1X/DAY (ONCE EACH MORNING)
     Dates: start: 2014
  13. BIOTIN [Suspect]
     Active Substance: BIOTIN
     Indication: VITAMIN SUPPLEMENTATION
     Dosage: 5000 ?G, 1X/DAY
     Dates: start: 201502

REACTIONS (11)
  - Tremor [Recovered/Resolved]
  - Nausea [Recovered/Resolved]
  - Cardiac disorder [Recovered/Resolved]
  - Weight decreased [Recovered/Resolved]
  - Asthenia [Recovered/Resolved]
  - Decreased appetite [Recovered/Resolved]
  - Visual impairment [Not Recovered/Not Resolved]
  - Heart rate abnormal [Recovered/Resolved]
  - Drug ineffective [Unknown]
  - Photosensitivity reaction [Not Recovered/Not Resolved]
  - Hyperacusis [Not Recovered/Not Resolved]

NARRATIVE: CASE EVENT DATE: 2013
